FAERS Safety Report 20188741 (Version 2)
Quarter: 2022Q1

REPORT INFORMATION
  Report Type: Spontaneous
  Country: GB (occurrence: None)
  Receive Date: 20211215
  Receipt Date: 20220301
  Transmission Date: 20220423
  Serious: Yes (Death)
  Sender: FDA-Public Use
  Company Number: 2021A868082

PATIENT
  Age: 85 Year
  Sex: Male
  Weight: 83 kg

DRUGS (10)
  1. ACALABRUTINIB [Suspect]
     Active Substance: ACALABRUTINIB
     Indication: Chronic lymphocytic leukaemia
     Dosage: 100MG
     Route: 048
     Dates: start: 20211118, end: 20211124
  2. ALENDRONIC ACID [Concomitant]
     Active Substance: ALENDRONIC ACID
     Indication: Ill-defined disorder
     Dates: start: 20191128
  3. ALLOPURINOL [Concomitant]
     Active Substance: ALLOPURINOL
     Indication: Ill-defined disorder
     Dates: start: 20211117
  4. ATORVASTATIN [Concomitant]
     Active Substance: ATORVASTATIN
     Indication: Ill-defined disorder
     Dates: start: 20150529
  5. DALTEPARIN [Concomitant]
     Active Substance: DALTEPARIN
     Indication: Ill-defined disorder
     Dosage: 18000 UNITS
     Dates: start: 20210916
  6. MIRABEGRON [Concomitant]
     Active Substance: MIRABEGRON
     Indication: Ill-defined disorder
     Dates: start: 20171204
  7. OMEPRAZOLE [Concomitant]
     Active Substance: OMEPRAZOLE
     Indication: Ill-defined disorder
     Dates: start: 20200207
  8. SOLIFENACIN [Concomitant]
     Active Substance: SOLIFENACIN
     Indication: Ill-defined disorder
     Dates: start: 20200207
  9. VENLAFAXINE HYDROCHLORIDE [Concomitant]
     Active Substance: VENLAFAXINE HYDROCHLORIDE
     Indication: Ill-defined disorder
     Dates: start: 20170421
  10. ACETAMINOPHEN [Concomitant]
     Active Substance: ACETAMINOPHEN
     Dates: start: 20211124

REACTIONS (4)
  - Haemorrhage [Fatal]
  - Haematoma [Fatal]
  - Pain in extremity [Fatal]
  - Organ failure [Fatal]

NARRATIVE: CASE EVENT DATE: 20211124
